FAERS Safety Report 6618426-4 (Version None)
Quarter: 2010Q1

REPORT INFORMATION
  Report Type: 
  Country: None (occurrence: None)
  Receive Date: 20100308
  Receipt Date: 20100301
  Transmission Date: 20100710
  Serious: Yes (Hospitalization)
  Sender: FDA-Public Use
  Company Number: B0638090A

PATIENT
  Age: 86 Year
  Sex: Female

DRUGS (1)
  1. DIGOXIN [Suspect]
     Dosage: 2TAB PER DAY
     Route: 048

REACTIONS (7)
  - ABDOMINAL PAIN [None]
  - BRADYCARDIA [None]
  - CONSTIPATION [None]
  - DRUG ADMINISTRATION ERROR [None]
  - MEDICATION ERROR [None]
  - THERAPEUTIC AGENT TOXICITY [None]
  - VOMITING [None]
